FAERS Safety Report 4820666-1 (Version None)
Quarter: 2005Q4

REPORT INFORMATION
  Report Type: 
  Country: None (occurrence: None)
  Receive Date: 20051104
  Receipt Date: 20051024
  Transmission Date: 20060501
  Serious: Yes (Hospitalization)
  Sender: FDA-Public Use
  Company Number: FR-GILEAD-2005-0008866

PATIENT
  Sex: Male
  Weight: 80 kg

DRUGS (8)
  1. VIREAD [Suspect]
     Indication: HIV INFECTION
     Route: 048
     Dates: start: 20030701, end: 20050813
  2. PENTACARINAT [Suspect]
     Indication: PROPHYLAXIS
     Route: 055
     Dates: start: 20030701, end: 20050813
  3. FENOFIBRATE [Suspect]
     Indication: DIABETES MELLITUS NON-INSULIN-DEPENDENT
     Route: 048
     Dates: start: 20050101, end: 20050813
  4. METFORMINE [Suspect]
     Indication: DIABETES MELLITUS
     Route: 048
     Dates: start: 20050101, end: 20050813
  5. MALOCIDE [Suspect]
     Indication: PROPHYLAXIS
     Route: 048
     Dates: start: 20030701, end: 20050813
  6. NORVIR [Concomitant]
     Indication: HIV INFECTION
     Dates: start: 20030101
  7. REYATAZ [Concomitant]
     Indication: HIV INFECTION
     Dates: start: 20030101
  8. ZIAGEN [Concomitant]
     Indication: HIV INFECTION
     Dates: start: 20030101

REACTIONS (5)
  - BLOOD CREATINE PHOSPHOKINASE INCREASED [None]
  - DIALYSIS [None]
  - HYPERURICAEMIA [None]
  - MYOGLOBINAEMIA [None]
  - RENAL FAILURE ACUTE [None]
